FAERS Safety Report 16416061 (Version 1)
Quarter: 2019Q2

REPORT INFORMATION
  Report Type: Spontaneous
  Country: AU (occurrence: AU)
  Receive Date: 20190611
  Receipt Date: 20190611
  Transmission Date: 20190711
  Serious: Yes (Other)
  Sender: FDA-Public Use
  Company Number: AU-009507513-1906AUS002549

PATIENT
  Age: 5 Year
  Sex: Male

DRUGS (1)
  1. LUKAIR [Suspect]
     Active Substance: MONTELUKAST SODIUM
     Indication: ASTHMA
     Dosage: UNK
     Dates: start: 201804

REACTIONS (3)
  - Psychotic behaviour [Recovering/Resolving]
  - Disturbance in attention [Unknown]
  - Aggression [Unknown]

NARRATIVE: CASE EVENT DATE: 20180701
